FAERS Safety Report 4549690-3 (Version None)
Quarter: 2005Q1

REPORT INFORMATION
  Report Type: 
  Country: None (occurrence: None)
  Receive Date: 20050107
  Receipt Date: 20041222
  Transmission Date: 20050727
  Serious: Yes (Hospitalization)
  Sender: FDA-Public Use
  Company Number: 200411380

PATIENT
  Age: 73 Year
  Sex: Male

DRUGS (2)
  1. ALPHAGAN P [Suspect]
     Indication: GLAUCOMA
     Dosage: 2 DROP TID EYE
     Dates: start: 20041129, end: 20041130
  2. XALANTAN [Concomitant]

REACTIONS (4)
  - BLOOD PRESSURE INCREASED [None]
  - HEART RATE IRREGULAR [None]
  - MYOCARDIAL INFARCTION [None]
  - NAUSEA [None]
